FAERS Safety Report 5454669-3 (Version None)
Quarter: 2007Q3

REPORT INFORMATION
  Report Type: 
  Country: None (occurrence: None)
  Receive Date: 20070917
  Receipt Date: 20060815
  Transmission Date: 20080115
  Serious: Yes (Other)
  Sender: FDA-Public Use
  Company Number: US-ASTRAZENECA-2006UW16248

PATIENT
  Age: 44 Year
  Sex: Female
  Weight: 62.1 kg

DRUGS (5)
  1. SEROQUEL [Suspect]
     Route: 048
  2. SEROQUEL [Suspect]
     Route: 048
  3. CELEXA [Concomitant]
  4. VALIUM [Concomitant]
  5. TRAZODONE HCL [Concomitant]

REACTIONS (3)
  - EXTRAPYRAMIDAL DISORDER [None]
  - HEPATIC STEATOSIS [None]
  - RASH [None]
